FAERS Safety Report 11500607 (Version 2)
Quarter: 2015Q3

REPORT INFORMATION
  Report Type: Spontaneous
  Country: US (occurrence: US)
  Receive Date: 20150914
  Receipt Date: 20150924
  Transmission Date: 20151125
  Serious: No
  Sender: FDA-Public Use
  Company Number: US-BAYER-2015-414262

PATIENT
  Age: 29 Year
  Sex: Female

DRUGS (1)
  1. MIRENA [Suspect]
     Active Substance: LEVONORGESTREL
     Indication: CONTRACEPTION
     Dosage: 20 MCG/24HR, CONT
     Route: 015
     Dates: start: 20100902, end: 20150810

REACTIONS (6)
  - Polycystic ovaries [None]
  - Weight increased [None]
  - Migraine [None]
  - Hormone level abnormal [None]
  - Alopecia [Not Recovered/Not Resolved]
  - Headache [None]

NARRATIVE: CASE EVENT DATE: 2010
